FAERS Safety Report 5737749-4 (Version None)
Quarter: 2008Q2

REPORT INFORMATION
  Report Type: 
  Country: None (occurrence: None)
  Receive Date: 20080514
  Receipt Date: 20080508
  Transmission Date: 20081010
  Serious: Yes (Other)
  Sender: FDA-Public Use
  Company Number: D0057234A

PATIENT
  Sex: Female

DRUGS (2)
  1. LAMICTAL [Suspect]
     Route: 048
  2. ST JOHNS WORT [Suspect]
     Route: 065

REACTIONS (2)
  - CONVULSION [None]
  - DRUG INTERACTION [None]
